FAERS Safety Report 22146700 (Version 1)
Quarter: 2023Q1

REPORT INFORMATION
  Report Type: Spontaneous
  Country: US (occurrence: None)
  Receive Date: 20230327
  Receipt Date: 20230327
  Transmission Date: 20230417
  Serious: Yes (Other)
  Sender: FDA-Public Use
  Company Number: None

PATIENT
  Age: 26 Year
  Sex: Female
  Weight: 58.5 kg

DRUGS (1)
  1. STRATTERA [Suspect]
     Active Substance: ATOMOXETINE HYDROCHLORIDE
     Indication: Attention deficit hyperactivity disorder
     Dates: start: 20221101, end: 20230228

REACTIONS (11)
  - Palpitations [None]
  - Dizziness [None]
  - Nausea [None]
  - Hyperhidrosis [None]
  - Headache [None]
  - Dizziness [None]
  - Vomiting [None]
  - Hot flush [None]
  - Feeling of body temperature change [None]
  - Feeling abnormal [None]
  - Drug ineffective [None]

NARRATIVE: CASE EVENT DATE: 20221229
